FAERS Safety Report 23112065 (Version 2)
Quarter: 2023Q4

REPORT INFORMATION
  Report Type: Spontaneous
  Country: JP (occurrence: JP)
  Receive Date: 20231026
  Receipt Date: 20231107
  Transmission Date: 20240110
  Serious: Yes (Hospitalization)
  Sender: FDA-Public Use
  Company Number: JP-BAUSCH-BL-2023-015760

PATIENT
  Age: 32 Year
  Sex: Male

DRUGS (4)
  1. BUDESONIDE [Suspect]
     Active Substance: BUDESONIDE
     Indication: Colitis ulcerative
     Route: 054
     Dates: start: 20230501
  2. CAROTEGRAST METHYL [Suspect]
     Active Substance: CAROTEGRAST METHYL
     Indication: Colitis ulcerative
     Route: 048
     Dates: start: 20230529, end: 20230612
  3. FLOMAX [Suspect]
     Active Substance: TAMSULOSIN HYDROCHLORIDE
     Indication: Anal fistula
     Route: 048
  4. LIALDA [Concomitant]
     Active Substance: MESALAMINE
     Indication: Product used for unknown indication

REACTIONS (1)
  - Antibiotic associated colitis [Recovered/Resolved]

NARRATIVE: CASE EVENT DATE: 20230615
